FAERS Safety Report 11346590 (Version 1)
Quarter: 2015Q3

REPORT INFORMATION
  Report Type: Spontaneous
  Country: US (occurrence: US)
  Receive Date: 20150803
  Receipt Date: 20150803
  Transmission Date: 20151125
  Serious: No
  Sender: FDA-Public Use
  Company Number: US-ELI_LILLY_AND_COMPANY-USA0507103724

PATIENT
  Age: 11 Year
  Sex: Male
  Weight: 29.93 kg

DRUGS (3)
  1. STRATTERA [Suspect]
     Active Substance: ATOMOXETINE HYDROCHLORIDE
     Indication: ATTENTION DEFICIT/HYPERACTIVITY DISORDER
     Dosage: UNK, UNK
     Dates: start: 20050713
  2. STRATTERA [Suspect]
     Active Substance: ATOMOXETINE HYDROCHLORIDE
     Dosage: 18 MG, DAILY (1/D)
     Dates: start: 2007, end: 2007
  3. STRATTERA [Suspect]
     Active Substance: ATOMOXETINE HYDROCHLORIDE
     Dosage: 18 MG 2 CAPSULES
     Dates: start: 2007, end: 20070923

REACTIONS (11)
  - Headache [Not Recovered/Not Resolved]
  - Ear infection [Not Recovered/Not Resolved]
  - Decreased appetite [Recovered/Resolved]
  - Contusion [Unknown]
  - Migraine [Not Recovered/Not Resolved]
  - Vomiting [Recovered/Resolved]
  - Depression [Unknown]
  - Streptococcus test positive [Unknown]
  - Ear pain [Unknown]
  - Tonsillitis [Unknown]
  - Influenza like illness [Not Recovered/Not Resolved]

NARRATIVE: CASE EVENT DATE: 2005
